FAERS Safety Report 23999837 (Version 1)
Quarter: 2024Q2

REPORT INFORMATION
  Report Type: Spontaneous
  Country: US (occurrence: None)
  Receive Date: 20240620
  Receipt Date: 20240620
  Transmission Date: 20240716
  Serious: No
  Sender: FDA-Public Use
  Company Number: None

PATIENT
  Age: 73 Year
  Sex: Female
  Weight: 63.9 kg

DRUGS (8)
  1. IMIPRAMINE [Suspect]
     Active Substance: IMIPRAMINE
     Indication: Cystitis interstitial
     Dosage: OTHER QUANTITY : 180 TABLET(S);?FREQUENCY : AT BEDTIME;?
     Route: 048
     Dates: start: 20240126
  2. ATORVASTATIN [Concomitant]
     Active Substance: ATORVASTATIN
  3. CELECOXIB [Concomitant]
     Active Substance: CELECOXIB
  4. RIZATRIPTAN [Concomitant]
     Active Substance: RIZATRIPTAN
  5. PROPRANOLOL [Concomitant]
     Active Substance: PROPRANOLOL HYDROCHLORIDE
  6. BLADDER BUILDER [Concomitant]
  7. VITAMIN D NOS [Concomitant]
     Active Substance: CHOLECALCIFEROL\ERGOCALCIFEROL
  8. ZINC [Concomitant]
     Active Substance: PYRITHIONE ZINC\ZINC\ZINC CHLORIDE

REACTIONS (11)
  - Heart rate increased [None]
  - Palpitations [None]
  - Chest discomfort [None]
  - Peripheral swelling [None]
  - Muscular weakness [None]
  - Tremor [None]
  - Hyperhidrosis [None]
  - Middle insomnia [None]
  - Hallucination, visual [None]
  - Therapy change [None]
  - Ophthalmic migraine [None]
